FAERS Safety Report 21124711 (Version 1)
Quarter: 2022Q3

REPORT INFORMATION
  Report Type: Spontaneous
  Country: US (occurrence: None)
  Receive Date: 20220723
  Receipt Date: 20220723
  Transmission Date: 20221027
  Serious: No
  Sender: FDA-Public Use
  Company Number: None

PATIENT
  Age: 24 Year
  Weight: 63 kg

DRUGS (4)
  1. PAXLOVID [Suspect]
     Active Substance: NIRMATRELVIR\RITONAVIR
     Indication: COVID-19
     Dosage: OTHER QUANTITY : 3 TABLET(S);?FREQUENCY : TWICE A DAY;?
     Dates: start: 20220722, end: 20220723
  2. BUSPAR/BUSPIRONE [Concomitant]
  3. GINGER ROOT [Concomitant]
  4. PROBIOTIC [Concomitant]

REACTIONS (8)
  - Dysgeusia [None]
  - Asthenia [None]
  - Nausea [None]
  - Vertigo [None]
  - Diarrhoea [None]
  - Oropharyngeal pain [None]
  - Pyrexia [None]
  - Headache [None]

NARRATIVE: CASE EVENT DATE: 20220723
